FAERS Safety Report 5765497-3 (Version None)
Quarter: 2008Q2

REPORT INFORMATION
  Report Type: 
  Country: None (occurrence: None)
  Receive Date: 20080611
  Receipt Date: 20080605
  Transmission Date: 20081010
  Serious: Yes (Hospitalization)
  Sender: FDA-Public Use
  Company Number: B0524333A

PATIENT
  Age: 14 Year
  Sex: Female

DRUGS (2)
  1. ZENTEL [Suspect]
     Indication: TOXOCARIASIS
     Dosage: 2TAB PER DAY
     Route: 065
     Dates: start: 20080501, end: 20080507
  2. VERMOX [Concomitant]
     Route: 065
     Dates: start: 20080201

REACTIONS (7)
  - CARDIAC DISORDER [None]
  - CYANOSIS [None]
  - EMOTIONAL DISORDER [None]
  - GASTROINTESTINAL INFLAMMATION [None]
  - HYPOVENTILATION [None]
  - TACHYCARDIA [None]
  - TRICUSPID VALVE INCOMPETENCE [None]
